FAERS Safety Report 16999801 (Version 1)
Quarter: 2019Q4

REPORT INFORMATION
  Report Type: Spontaneous
  Country: PH (occurrence: PH)
  Receive Date: 20191105
  Receipt Date: 20191105
  Transmission Date: 20200122
  Serious: Yes (Death, Other)
  Sender: FDA-Public Use
  Company Number: NVSC2019PH024052

PATIENT
  Age: 69 Year
  Sex: Male

DRUGS (16)
  1. CARDIPRES [Suspect]
     Active Substance: CARVEDILOL
     Indication: PRODUCT USED FOR UNKNOWN INDICATION
     Dosage: 1/4 TAB 7 AM AND 1/4 TAB 7 PM
     Route: 065
  2. INSULIN [Suspect]
     Active Substance: INSULIN NOS
     Indication: DIABETES MELLITUS
     Dosage: UNK
     Route: 065
  3. CLOVIX (CLOPIDOGREL BESYLATE) [Suspect]
     Active Substance: CLOPIDOGREL BESILATE
     Indication: PRODUCT USED FOR UNKNOWN INDICATION
     Dosage: 1 DF, QD (AFTER LUNCH)
     Route: 065
  4. SPIRONOLACTONE. [Suspect]
     Active Substance: SPIRONOLACTONE
     Indication: PRODUCT USED FOR UNKNOWN INDICATION
     Dosage: 1 DF, QD (AT 12 NOON)
     Route: 065
  5. ENTRESTO [Suspect]
     Active Substance: SACUBITRIL\VALSARTAN
     Indication: PRODUCT USED FOR UNKNOWN INDICATION
     Dosage: 100 MG
     Route: 065
     Dates: start: 20190801
  6. ENTRESTO [Suspect]
     Active Substance: SACUBITRIL\VALSARTAN
     Dosage: 300 MG, BID
     Route: 065
     Dates: end: 20190922
  7. MOVELAX [Suspect]
     Active Substance: LACTULOSE
     Indication: PRODUCT USED FOR UNKNOWN INDICATION
     Dosage: 20 CC AT BEDTIME, HOLD IF BM WAS 2 OR MORE PER DAY
     Route: 065
  8. RYTHMA [Suspect]
     Active Substance: AMIODARONE HYDROCHLORIDE
     Indication: PRODUCT USED FOR UNKNOWN INDICATION
     Dosage: 0.5 DF, QD (AFTER BREAKFAST)
     Route: 065
  9. BESPRIN [Suspect]
     Active Substance: ASPIRIN
     Indication: PRODUCT USED FOR UNKNOWN INDICATION
     Dosage: 1 DF, QD (AFTER BREAKFAST)
     Route: 065
  10. ISORDIL [Suspect]
     Active Substance: ISOSORBIDE DINITRATE
     Indication: CHEST PAIN
     Dosage: 1 DF, PRN
     Route: 060
  11. GLIMESYN [Suspect]
     Active Substance: GLIMEPIRIDE
     Indication: PRODUCT USED FOR UNKNOWN INDICATION
     Dosage: 0.5 MG, QD (BEFORE DINNER)
     Route: 065
  12. ITORVAZ [Suspect]
     Active Substance: ATORVASTATIN CALCIUM
     Indication: PRODUCT USED FOR UNKNOWN INDICATION
     Dosage: 1 DF, QD (AFTER DINNER)
     Route: 065
  13. RIVOTRIL [Suspect]
     Active Substance: CLONAZEPAM
     Indication: PRODUCT USED FOR UNKNOWN INDICATION
     Dosage: UNK
     Route: 065
  14. VASOTRATE% [Suspect]
     Active Substance: ISOSORBIDE MONONITRATE
     Indication: PRODUCT USED FOR UNKNOWN INDICATION
     Dosage: 1 DF, QD (AT 6 AM)
     Route: 065
  15. CORALAN [Suspect]
     Active Substance: IVABRADINE HYDROCHLORIDE
     Indication: PRODUCT USED FOR UNKNOWN INDICATION
     Dosage: 0.5 DF, BID (AT BREAKFAST AND AT DINNER)
     Route: 065
  16. INVOKANA [Suspect]
     Active Substance: CANAGLIFLOZIN
     Indication: PRODUCT USED FOR UNKNOWN INDICATION
     Dosage: 1 DF, QD (BEFORE BREAKFAST)
     Route: 065

REACTIONS (13)
  - Somnolence [Unknown]
  - Neutrophil count increased [Unknown]
  - Red cell distribution width increased [Unknown]
  - Dysstasia [Unknown]
  - Dry mouth [Unknown]
  - Malaise [Unknown]
  - Abdominal pain upper [Unknown]
  - Hepatic failure [Fatal]
  - Back pain [Unknown]
  - Renal failure [Fatal]
  - Diabetes mellitus [Unknown]
  - Hypotension [Unknown]
  - Cardiogenic shock [Fatal]

NARRATIVE: CASE EVENT DATE: 20190912
